FAERS Safety Report 11258512 (Version 1)
Quarter: 2015Q3

REPORT INFORMATION
  Report Type: Spontaneous
  Country: GB (occurrence: GB)
  Receive Date: 20150710
  Receipt Date: 20150710
  Transmission Date: 20151125
  Serious: Yes (Other)
  Sender: FDA-Public Use
  Company Number: GB-BIAL, PORTELA + CA S.A.-BIAL-03012

PATIENT
  Sex: Male

DRUGS (4)
  1. ANTIEPILEPTICS [Concomitant]
     Active Substance: UNSPECIFIED INGREDIENT
     Indication: EPILEPSY
  2. ZEBINIX (ESLICARBAZEPINE ACETATE) [Suspect]
     Active Substance: ESLICARBAZEPINE ACETATE
     Indication: EPILEPSY
     Dosage: 1200 MG, DAILY
     Route: 048
  3. ZEBINIX (ESLICARBAZEPINE ACETATE) [Suspect]
     Active Substance: ESLICARBAZEPINE ACETATE
     Indication: EPILEPSY
     Dosage: UNK
     Route: 048
  4. KEPPRA [Concomitant]
     Active Substance: LEVETIRACETAM
     Indication: EPILEPSY
     Dosage: UNK

REACTIONS (3)
  - Feeling drunk [Unknown]
  - Discomfort [Unknown]
  - Seizure [Unknown]
